FAERS Safety Report 9506442 (Version 1)
Quarter: 2013Q3

REPORT INFORMATION
  Report Type: Spontaneous
  Country: GB (occurrence: None)
  Receive Date: 20130904
  Receipt Date: 20130904
  Transmission Date: 20140515
  Serious: Yes (Disabling)
  Sender: FDA-Public Use
  Company Number: AUR-APL-2013-07157

PATIENT
  Age: 93 Year
  Sex: Female
  Weight: 53 kg

DRUGS (12)
  1. CEFALEXIN (CEFALEXIN) [Suspect]
     Indication: PRODUCT USED FOR UNKNOWN INDICATION
     Dates: start: 20130809
  2. ASPIRIN (ACETYLSALICYLIC ACID) [Concomitant]
  3. BETAMETHASONE VALERATE (BETAMETHASONE VALERATE) [Concomitant]
  4. BISOPROLOL (BISOPROLOL) [Concomitant]
  5. CLOPIDOGREL (CLOPIDOGREL) [Concomitant]
  6. CO-CODAMOL (PANADEINE CO) [Concomitant]
  7. DOUBLEBASE (HYDROMOL/00906601/) [Concomitant]
  8. FUROSEMIDE (FUROSEMIDE) [Concomitant]
  9. LOSARTAN (LOSARTAN) [Concomitant]
  10. OMEPRAZOLE (OMEPRAZOLE) [Concomitant]
  11. SIMVASTATIN (SIMVASTATIN) [Concomitant]
  12. TRIMETHOPRIM (TRIMETHOPRIM) [Concomitant]

REACTIONS (2)
  - Arthralgia [None]
  - Arthralgia [None]
